FAERS Safety Report 5482443-0 (Version None)
Quarter: 2007Q4

REPORT INFORMATION
  Report Type: 
  Country: None (occurrence: None)
  Receive Date: 20071011
  Receipt Date: 20071011
  Transmission Date: 20080405
  Serious: Yes (Other)
  Sender: FDA-Public Use
  Company Number: A0687050A

PATIENT
  Age: 74 Year
  Sex: Female

DRUGS (1)
  1. DEBROX DROPS [Suspect]
     Indication: DRUG USE FOR UNKNOWN INDICATION
     Route: 065

REACTIONS (4)
  - ACCIDENTAL EXPOSURE [None]
  - CORNEAL ABRASION [None]
  - INCORRECT ROUTE OF DRUG ADMINISTRATION [None]
  - KERATITIS [None]
